FAERS Safety Report 13380984 (Version 1)
Quarter: 2017Q1

REPORT INFORMATION
  Report Type: Report from Study
  Country: US (occurrence: US)
  Receive Date: 20170329
  Receipt Date: 20170329
  Transmission Date: 20170429
  Serious: Yes (Other)
  Sender: FDA-Public Use
  Company Number: US-GILEAD-2017-0264427

PATIENT
  Age: 52 Year
  Sex: Female

DRUGS (1)
  1. AMBRISENTAN [Suspect]
     Active Substance: AMBRISENTAN
     Indication: PRODUCT USED FOR UNKNOWN INDICATION
     Dosage: 10 MG, QD
     Route: 065

REACTIONS (6)
  - Blood copper increased [Not Recovered/Not Resolved]
  - Blood pressure decreased [Unknown]
  - Productive cough [Unknown]
  - Lung infection [Unknown]
  - Heart rate increased [Unknown]
  - Gastric disorder [Not Recovered/Not Resolved]
